FAERS Safety Report 11958132 (Version 2)
Quarter: 2016Q1

REPORT INFORMATION
  Report Type: Spontaneous
  Country: DE (occurrence: DE)
  Receive Date: 20160126
  Receipt Date: 20160126
  Transmission Date: 20160526
  Serious: Yes (Death)
  Sender: FDA-Public Use
  Company Number: DE-AMGEN-DEUSP2016007648

PATIENT
  Age: 72 Year
  Sex: Male
  Weight: 78 kg

DRUGS (8)
  1. PREDNISOLON                        /00016201/ [Concomitant]
     Active Substance: PREDNISOLONE
     Indication: POLYARTHRITIS
     Dosage: 5 MG, WEEKLY
     Route: 048
     Dates: start: 20050503, end: 201601
  2. METEX                              /00082702/ [Concomitant]
     Active Substance: METFORMIN HYDROCHLORIDE
     Indication: POLYARTHRITIS
     Dosage: 20 MG, WEEKLY
     Route: 058
     Dates: start: 20060517, end: 201511
  3. BISOPROLOL [Concomitant]
     Active Substance: BISOPROLOL
     Dosage: 2.5 MG, UNK
  4. DEKRISTOL [Concomitant]
     Active Substance: CHOLECALCIFEROL
     Indication: VITAMIN D DEFICIENCY
     Dosage: 20000 IU, WEEKLY
     Dates: start: 20140725, end: 201601
  5. RAMIPRIL. [Concomitant]
     Active Substance: RAMIPRIL
     Dosage: 5 MG, UNK
  6. ENBREL [Suspect]
     Active Substance: ETANERCEPT
     Indication: POLYARTHRITIS
     Dosage: 50 MG, WEEKLY
     Route: 058
     Dates: start: 20110609, end: 201511
  7. ASPIRIN. [Concomitant]
     Active Substance: ASPIRIN
     Dosage: 100 UNK, UNK
  8. INEGY [Concomitant]
     Active Substance: EZETIMIBE\SIMVASTATIN
     Dosage: UNK
     Dates: start: 201410, end: 201601

REACTIONS (2)
  - Product use issue [Unknown]
  - Bronchial carcinoma [Fatal]
